FAERS Safety Report 6080923-0 (Version None)
Quarter: 2009Q1

REPORT INFORMATION
  Report Type: 
  Country: None (occurrence: None)
  Receive Date: 20090217
  Receipt Date: 20090217
  Transmission Date: 20090719
  Serious: Yes (Death)
  Sender: FDA-Public Use
  Company Number: US-ROXANE LABORATORIES, INC.-2008-BP-13681RO

PATIENT
  Sex: Female
  Weight: 105 kg

DRUGS (25)
  1. METHADONE HCL [Suspect]
     Indication: PAIN
     Dates: start: 20050601
  2. METHADONE HCL [Suspect]
     Dates: start: 20060601
  3. METHADONE HCL [Suspect]
     Dates: start: 20060706
  4. METHADOSE [Suspect]
     Indication: PAIN
     Dates: start: 20060713
  5. TRAMADOL HCL [Suspect]
  6. SOMA [Concomitant]
  7. CLONAZEPAM [Concomitant]
     Dates: start: 20030101
  8. ALBUTEROL [Concomitant]
  9. MIRALAZ [Concomitant]
  10. EFFEXOR [Concomitant]
     Dosage: 300MG
     Dates: start: 20030101
  11. DETROL LA 10/500 [Concomitant]
  12. ASPIRIN [Concomitant]
  13. BENICAR [Concomitant]
     Dosage: 2MG
  14. ADVICOR [Concomitant]
  15. HYDROCODONE BITARTRATE [Concomitant]
     Dates: start: 20030101
  16. HYDROCODONE BITARTRATE [Concomitant]
  17. PROTONIC [Concomitant]
     Dates: start: 20030101
  18. SYNTHROID [Concomitant]
     Dosage: 25MCG
  19. MOBIC [Concomitant]
  20. RESTORIL [Concomitant]
  21. CELEBREX [Concomitant]
     Dates: start: 20030101, end: 20060701
  22. AMBIEN [Concomitant]
     Dates: end: 20060701
  23. TEMAZEPAM [Concomitant]
  24. QVAR 40 [Concomitant]
  25. MULTIPLE MEDICATIONS [Concomitant]
     Indication: POLIOMYELITIS

REACTIONS (17)
  - AORTIC ARTERIOSCLEROSIS [None]
  - ARTHRALGIA [None]
  - BACK PAIN [None]
  - CARDIOMEGALY [None]
  - CARDIOVASCULAR DISORDER [None]
  - DRUG INEFFECTIVE [None]
  - DRUG TOXICITY [None]
  - HEPATOSPLENOMEGALY [None]
  - HYPERTENSION [None]
  - HYPOAESTHESIA [None]
  - LEFT VENTRICULAR HYPERTROPHY [None]
  - MYALGIA [None]
  - PAIN IN EXTREMITY [None]
  - PULMONARY CONGESTION [None]
  - SNORING [None]
  - URINARY BLADDER POLYP [None]
  - WALKING AID USER [None]
